FAERS Safety Report 24276517 (Version 1)
Quarter: 2024Q3

REPORT INFORMATION
  Report Type: Spontaneous
  Country: GB (occurrence: GB)
  Receive Date: 20240903
  Receipt Date: 20240903
  Transmission Date: 20241017
  Serious: Yes (Other)
  Sender: RANBAXY
  Company Number: GB-MHRA-TPP29563363C10350209YC1723820209748

PATIENT
  Age: 14 Year
  Sex: Male
  Weight: 82 kg

DRUGS (7)
  1. RISPERIDONE [Suspect]
     Active Substance: RISPERIDONE
     Indication: Product used for unknown indication
     Dosage: UNK
     Route: 065
     Dates: start: 20240816
  2. FLUCLOXACILLIN [Concomitant]
     Active Substance: FLUCLOXACILLIN
     Indication: Product used for unknown indication
     Dosage: LEG ULCER: TAKE ONE CAPSULE FOUR TIMES A DAY FO...
     Route: 065
     Dates: start: 20240620, end: 20240627
  3. CLARITHROMYCIN [Concomitant]
     Active Substance: CLARITHROMYCIN
     Indication: Product used for unknown indication
     Dosage: CELLULITIS/ERYSIPELAS: TAKE ONE TABLET TWICE A DAY FOR 7DAYS
     Route: 065
     Dates: start: 20240807, end: 20240812
  4. MEPIVACAINE HYDROCHLORIDE [Concomitant]
     Active Substance: MEPIVACAINE HYDROCHLORIDE
     Indication: Product used for unknown indication
     Dosage: 2 X 2.2ML AT 14.00 1ML AT 14.10
     Route: 065
     Dates: start: 20240723
  5. PHENOL LIQUEFIED [Concomitant]
     Indication: Product used for unknown indication
     Dosage: 3 X EZ SWABS
     Route: 065
     Dates: start: 20240723
  6. FLUOXETINE [Concomitant]
     Active Substance: FLUOXETINE HYDROCHLORIDE
     Indication: Product used for unknown indication
     Dosage: 1X2.5ML SPOON DAILY
     Route: 065
     Dates: start: 20240328
  7. PROMETHAZINE HYDROCHLORIDE [Concomitant]
     Active Substance: PROMETHAZINE HYDROCHLORIDE
     Indication: Product used for unknown indication
     Dosage: ONE OR TWO AT EVENING
     Route: 065
     Dates: start: 20240328

REACTIONS (5)
  - Dystonia [Unknown]
  - Parkinsonism [Recovered/Resolved]
  - Muscle spasms [Unknown]
  - Hypoaesthesia [Unknown]
  - Compulsive cheek biting [Unknown]
